FAERS Safety Report 7443638-X (Version None)
Quarter: 2011Q2

REPORT INFORMATION
  Report Type: 
  Country: None (occurrence: None)
  Receive Date: 20110428
  Receipt Date: 20110421
  Transmission Date: 20111010
  Serious: Yes (Hospitalization, Other)
  Sender: FDA-Public Use
  Company Number: CA-ROCHE-768549

PATIENT
  Sex: Male
  Weight: 98.9 kg

DRUGS (9)
  1. DECADRON [Concomitant]
     Dosage: DOSE: 4 QID
  2. ACETAMINOPHEN [Concomitant]
     Indication: PREMEDICATION
     Dosage: TAKEN ONCE
     Route: 048
     Dates: start: 20110318, end: 20110318
  3. BEVACIZUMAB [Suspect]
     Indication: GLIOBLASTOMA
     Route: 042
     Dates: start: 20110318, end: 20110401
  4. DILANTIN [Concomitant]
  5. METHYLPREDNISOLONE [Concomitant]
     Indication: PREMEDICATION
     Dosage: TAKEN ONCE
     Route: 042
     Dates: start: 20110318, end: 20110318
  6. ZOFRAN [Concomitant]
     Dosage: 6-8 MG IN AM
  7. DIPHENHYDRAMINE HYDROCHLORIDE [Concomitant]
     Indication: PREMEDICATION
     Dosage: TAKEN ONCE
     Route: 048
     Dates: start: 20110318, end: 20110318
  8. FRISIUM [Concomitant]
  9. PANTOLOC [Concomitant]

REACTIONS (5)
  - BALANCE DISORDER [None]
  - NEOPLASM PROGRESSION [None]
  - BLOOD SODIUM INCREASED [None]
  - VOMITING [None]
  - CONSTIPATION [None]
